FAERS Safety Report 8581537-0 (Version None)
Quarter: 2012Q3

REPORT INFORMATION
  Report Type: 
  Country: None (occurrence: None)
  Receive Date: 20120809
  Receipt Date: 20120803
  Transmission Date: 20120928
  Serious: Yes (Other)
  Sender: FDA-Public Use
  Company Number: FR-ROXANE LABORATORIES, INC.-2012-RO-01641RO

PATIENT
  Age: 65 Year
  Sex: Female

DRUGS (8)
  1. ACAMPROSATE [Suspect]
     Indication: ALCOHOL DETOXIFICATION
     Dosage: 1132 MG
  2. DIAZEPAM [Suspect]
     Dosage: 40 MG
  3. DIAZEPAM [Suspect]
     Dosage: 40 MG
  4. DIAZEPAM [Suspect]
     Indication: ALCOHOL DETOXIFICATION
     Dosage: 10 MG
  5. TAMOXIFEN CITRATE [Suspect]
     Indication: BREAST CANCER
     Dosage: 20 MG
  6. VENLAFAXINE [Suspect]
     Indication: ALCOHOL DETOXIFICATION
     Dosage: 225 MG
  7. DIAZEPAM [Suspect]
     Dosage: 30 MG
  8. TRAMADOL HCL [Suspect]
     Indication: BONE PAIN
     Dosage: 50 MG

REACTIONS (2)
  - CATATONIA [None]
  - ANXIETY DISORDER [None]
